FAERS Safety Report 10562418 (Version 1)
Quarter: 2014Q4

REPORT INFORMATION
  Report Type: Spontaneous
  Country: GB (occurrence: GB)
  Receive Date: 20141104
  Receipt Date: 20141104
  Transmission Date: 20150529
  Serious: Yes (Hospitalization)
  Sender: FDA-Public Use
  Company Number: PHFR2014GB007561

PATIENT
  Age: 59 Year
  Sex: Female

DRUGS (1)
  1. CLOZARIL [Suspect]
     Active Substance: CLOZAPINE
     Indication: SCHIZOPHRENIA
     Dosage: UNK
     Route: 048
     Dates: start: 20140923, end: 20141024

REACTIONS (6)
  - Liver disorder [Unknown]
  - White blood cell count increased [Recovered/Resolved]
  - Drug ineffective [Unknown]
  - Eosinophil count increased [Unknown]
  - Neutrophil count increased [Recovered/Resolved]
  - Incontinence [Unknown]

NARRATIVE: CASE EVENT DATE: 20141006
